FAERS Safety Report 25964074 (Version 1)
Quarter: 2025Q4

REPORT INFORMATION
  Report Type: Spontaneous
  Country: US (occurrence: None)
  Receive Date: 20251026
  Receipt Date: 20251026
  Transmission Date: 20260118
  Serious: Yes (Hospitalization)
  Sender: FDA-CTU
  Company Number: None

PATIENT
  Sex: Male

DRUGS (2)
  1. VYALEV [Suspect]
     Active Substance: FOSCARBIDOPA\FOSLEVODOPA
     Indication: Parkinson^s disease
     Dosage: OTHER STRENGTH : SEE EVENT;?FREQUENCY : DAILY;?
     Route: 058
  2. VIAL ADAPTER VENTED TRNSFR [Concomitant]

REACTIONS (3)
  - Infection [None]
  - Nodule [None]
  - Infusion site erythema [None]
